FAERS Safety Report 6240877-0 (Version None)
Quarter: 2009Q2

REPORT INFORMATION
  Report Type: 
  Country: None (occurrence: None)
  Receive Date: 20090623
  Receipt Date: 20090618
  Transmission Date: 20091009
  Serious: Yes (Other)
  Sender: FDA-Public Use
  Company Number: US-PFIZER INC-2007054447

PATIENT
  Sex: Female
  Weight: 109 kg

DRUGS (9)
  1. PROVERA [Suspect]
     Indication: HORMONE REPLACEMENT THERAPY
     Route: 048
     Dates: start: 19920101, end: 19990105
  2. MEDROXYPROGESTERONE AND MEDROXYPROGESTERONE ACETATE [Suspect]
     Indication: HORMONE REPLACEMENT THERAPY
     Route: 048
     Dates: start: 19920101, end: 19990105
  3. MEDROXYPROGESTERONE ACETATE [Suspect]
     Indication: HORMONE REPLACEMENT THERAPY
     Dosage: 10 MG, UNK
     Dates: start: 19920101, end: 19990105
  4. PREMARIN [Suspect]
     Indication: HORMONE REPLACEMENT THERAPY
     Dates: start: 19920101, end: 19990105
  5. PREMPRO [Suspect]
     Indication: HORMONE REPLACEMENT THERAPY
     Dosage: 0.625/5.0MG
     Dates: start: 19990106, end: 20020305
  6. ASPIRIN [Concomitant]
     Indication: CARDIAC DISORDER
     Dosage: UNK
     Dates: start: 20020701
  7. LASIX [Concomitant]
     Indication: DIURETIC THERAPY
     Dosage: UNK
     Dates: start: 19970422
  8. CALAN [Concomitant]
     Indication: HYPERTENSION
     Dosage: UNK
     Dates: start: 20020812
  9. CALAN [Concomitant]
     Indication: MIGRAINE

REACTIONS (1)
  - BREAST CANCER [None]
